FAERS Safety Report 9995821 (Version 2)
Quarter: 2014Q2

REPORT INFORMATION
  Report Type: Spontaneous
  Country: US (occurrence: US)
  Receive Date: 20140311
  Receipt Date: 20140408
  Transmission Date: 20141212
  Serious: Yes (Other)
  Sender: FDA-Public Use
  Company Number: US-TEVA-467664USA

PATIENT
  Age: 17 Year
  Sex: Female
  Weight: 51.3 kg

DRUGS (3)
  1. PARAGARD 380A [Suspect]
     Indication: CONTRACEPTION
     Route: 015
     Dates: start: 20140206, end: 20140305
  2. VYVANSE [Concomitant]
     Indication: ATTENTION DEFICIT/HYPERACTIVITY DISORDER
  3. VITAMIN D [Concomitant]
     Indication: NUTRITIONAL SUPPLEMENTATION

REACTIONS (4)
  - Device dislocation [Recovered/Resolved]
  - Dyspareunia [Unknown]
  - Device expulsion [Recovered/Resolved]
  - Discomfort [Recovered/Resolved]
